FAERS Safety Report 5113510-9 (Version None)
Quarter: 2006Q3

REPORT INFORMATION
  Report Type: 
  Country: None (occurrence: None)
  Receive Date: 20060920
  Receipt Date: 20060831
  Transmission Date: 20061208
  Serious: Yes (Life-Threatening)
  Sender: FDA-Public Use
  Company Number: JP200609000502

PATIENT
  Age: 68 Year
  Sex: Female
  Weight: 48 kg

DRUGS (2)
  1. RALOXIFENE HCL [Suspect]
     Indication: OSTEOPOROSIS POSTMENOPAUSAL
     Dosage: 60 MG, DAILY (1/D), ORAL
     Route: 048
     Dates: start: 20050509, end: 20051121
  2. ALFACALCIDOL (ALFACALCIDOL) CAPSULE [Concomitant]

REACTIONS (4)
  - COLON CANCER [None]
  - COLONIC STENOSIS [None]
  - CONSTIPATION [None]
  - MELAENA [None]
